FAERS Safety Report 10184924 (Version 1)
Quarter: 2014Q2

REPORT INFORMATION
  Report Type: Spontaneous
  Country: IT (occurrence: IT)
  Receive Date: 20140521
  Receipt Date: 20140521
  Transmission Date: 20141212
  Serious: Yes (Other)
  Sender: FDA-Public Use
  Company Number: IT-MYLANLABS-2014S1010725

PATIENT
  Age: 84 Year
  Sex: Female

DRUGS (6)
  1. METFORMIN [Suspect]
     Indication: DIABETES MELLITUS
     Dosage: 3000 MG DAILY
     Route: 048
     Dates: start: 20130101, end: 20130515
  2. REPAGLINIDE [Suspect]
     Indication: DIABETES MELLITUS
     Dosage: 6 MG DAILY
     Route: 048
     Dates: start: 20130101, end: 20130515
  3. CARDIOASPIRIN [Concomitant]
     Indication: PRODUCT USED FOR UNKNOWN INDICATION
     Route: 048
  4. SELEPARINA [Concomitant]
     Indication: PRODUCT USED FOR UNKNOWN INDICATION
     Route: 058
  5. SIMVASTATIN [Concomitant]
     Indication: PRODUCT USED FOR UNKNOWN INDICATION
     Dosage: 20 MG
     Route: 048
  6. AMLODIPINE [Concomitant]
     Indication: PRODUCT USED FOR UNKNOWN INDICATION
     Route: 048

REACTIONS (2)
  - Hypoglycaemia [Recovering/Resolving]
  - Syncope [Recovering/Resolving]
